FAERS Safety Report 9076888 (Version 1)
Quarter: 2013Q1

REPORT INFORMATION
  Report Type: Spontaneous
  Country: US (occurrence: US)
  Receive Date: 20130129
  Receipt Date: 20130129
  Transmission Date: 20140127
  Serious: No
  Sender: FDA-Public Use
  Company Number: US-ABBOTT-12P-163-0931487-00

PATIENT
  Sex: Female

DRUGS (1)
  1. HUMIRA 40 MG/ 0.8 ML PRE-FILLED SYRINGE [Suspect]
     Indication: PRODUCT USED FOR UNKNOWN INDICATION

REACTIONS (10)
  - Injection site urticaria [Unknown]
  - Injection site pain [Unknown]
  - Crohn^s disease [Not Recovered/Not Resolved]
  - Feeling abnormal [Unknown]
  - Injection site pain [Unknown]
  - Fatigue [Unknown]
  - Asthenia [Unknown]
  - White blood cell count increased [Unknown]
  - Neutrophil count increased [Unknown]
  - Inflammation [Unknown]
